FAERS Safety Report 14301328 (Version 1)
Quarter: 2017Q4

REPORT INFORMATION
  Report Type: Spontaneous
  Country: US (occurrence: US)
  Receive Date: 20171218
  Receipt Date: 20171218
  Transmission Date: 20180321
  Serious: No
  Sender: FDA-Public Use
  Company Number: None

PATIENT
  Age: 19 Year
  Sex: Female

DRUGS (1)
  1. MESALAMINE. [Suspect]
     Active Substance: MESALAMINE
     Route: 048
     Dates: start: 20171212, end: 20171218

REACTIONS (4)
  - Product substitution issue [None]
  - Disease recurrence [None]
  - Abdominal discomfort [None]
  - Colitis ulcerative [None]

NARRATIVE: CASE EVENT DATE: 20171212
